FAERS Safety Report 5182208-3 (Version None)
Quarter: 2006Q4

REPORT INFORMATION
  Report Type: 
  Country: None (occurrence: None)
  Receive Date: 20061220
  Receipt Date: 20060619
  Transmission Date: 20070319
  Serious: No
  Sender: FDA-Public Use
  Company Number: US-GLAXOSMITHKLINE-A0610264A

PATIENT
  Sex: Female

DRUGS (1)
  1. COMMIT [Suspect]
     Dates: end: 20060626

REACTIONS (1)
  - HICCUPS [None]
